FAERS Safety Report 18693506 (Version 4)
Quarter: 2021Q1

REPORT INFORMATION
  Report Type: Spontaneous
  Country: JP (occurrence: JP)
  Receive Date: 20210104
  Receipt Date: 20210204
  Transmission Date: 20210419
  Serious: Yes (Hospitalization)
  Sender: FDA-Public Use
  Company Number: JP-TERSERA THERAPEUTICS LLC-2020TRS004440

PATIENT

DRUGS (1)
  1. ZOLADEX [Suspect]
     Active Substance: GOSERELIN ACETATE
     Indication: ENDOMETRIOSIS
     Dosage: 1.8 MILLIGRAM, EVERY 4 WEEKS
     Route: 058
     Dates: start: 20201128, end: 20201226

REACTIONS (2)
  - Off label use [Unknown]
  - Abdominal wall haematoma [Recovered/Resolved]

NARRATIVE: CASE EVENT DATE: 20201228
